FAERS Safety Report 4621343-2 (Version None)
Quarter: 2005Q1

REPORT INFORMATION
  Report Type: 
  Country: None (occurrence: None)
  Receive Date: 20050324
  Receipt Date: 20050324
  Transmission Date: 20050727
  Serious: Yes (Other)
  Sender: FDA-Public Use
  Company Number: None

PATIENT
  Age: 60 Year
  Sex: Male
  Weight: 63.5036 kg

DRUGS (3)
  1. DEMEROL [Suspect]
     Indication: POST PROCEDURAL PAIN
     Dosage: 12.5MG Q 5 MIN INTRAVENOU
     Route: 042
     Dates: start: 20050307, end: 20050307
  2. PHENERGAN [Concomitant]
  3. LORTAB [Concomitant]

REACTIONS (2)
  - MUSCLE SPASMS [None]
  - POST PROCEDURAL COMPLICATION [None]
